FAERS Safety Report 9466963 (Version 1)
Quarter: 2013Q3

REPORT INFORMATION
  Report Type: Spontaneous
  Country: DK (occurrence: FR)
  Receive Date: 20130820
  Receipt Date: 20130820
  Transmission Date: 20140515
  Serious: Yes (Hospitalization)
  Sender: FDA-Public Use
  Company Number: FR-FRI-1000047928

PATIENT
  Age: 93 Year
  Sex: Female

DRUGS (10)
  1. ESCITALOPRAM [Suspect]
     Dosage: 1 DF
     Route: 048
     Dates: end: 20130611
  2. PREVISCAN [Suspect]
     Indication: ARRHYTHMIA SUPRAVENTRICULAR
     Dosage: 10 MG EVEN DAYS/5 MG ODD DAYS
     Route: 048
     Dates: end: 20130611
  3. AERIUS [Concomitant]
     Dosage: 1 DF
  4. HEMIGOXINE [Concomitant]
     Dosage: 1 DF
  5. INEXIUM [Concomitant]
     Dosage: 1 DF
  6. LEVEMIR [Concomitant]
     Dosage: 20 UNITS
  7. NOVORAPID [Concomitant]
     Dosage: DEPENDING ON CAPILLARY GLUCOSE
  8. LASILIX [Concomitant]
     Dosage: 80 MG ON MORNING AND 40 MG AT NOON
  9. NITRIDERM [Concomitant]
     Dosage: 1 DF
  10. SPASMINE [Concomitant]
     Dosage: 2 DF

REACTIONS (2)
  - Cerebral haemorrhage [Recovered/Resolved with Sequelae]
  - Condition aggravated [Recovered/Resolved with Sequelae]
